FAERS Safety Report 13347756 (Version 3)
Quarter: 2017Q2

REPORT INFORMATION
  Report Type: Spontaneous
  Country: US (occurrence: US)
  Receive Date: 20170317
  Receipt Date: 20170525
  Transmission Date: 20170830
  Serious: Yes (Other)
  Sender: FDA-Public Use
  Company Number: US-009507513-1703USA008269

PATIENT
  Age: 2 Year
  Sex: Male

DRUGS (1)
  1. DEXAMETHASONE. [Suspect]
     Active Substance: DEXAMETHASONE
     Indication: ACUTE LYMPHOCYTIC LEUKAEMIA
     Dosage: 6 MG/M2, PER DAY DIVIDED TWICE DAILY FOR 5-DAY PULSES

REACTIONS (7)
  - Hypervigilance [Recovering/Resolving]
  - Insomnia [Recovering/Resolving]
  - Abnormal behaviour [Recovered/Resolved]
  - Diet refusal [Recovering/Resolving]
  - Intentional self-injury [Recovering/Resolving]
  - Crying [Recovering/Resolving]
  - Aggression [Recovering/Resolving]
